FAERS Safety Report 8509366-4 (Version None)
Quarter: 2012Q3

REPORT INFORMATION
  Report Type: 
  Country: None (occurrence: None)
  Receive Date: 20120713
  Receipt Date: 20120706
  Transmission Date: 20120928
  Serious: Yes (Hospitalization)
  Sender: FDA-Public Use
  Company Number: US-UCBSA-061264

PATIENT
  Age: 33 Year
  Sex: Female
  Weight: 83.9 kg

DRUGS (28)
  1. AZATHIOPRINE [Concomitant]
     Indication: CROHN'S DISEASE
     Dosage: UNKNOWN DOSE
     Dates: start: 20110117
  2. CLOBERASOL [Concomitant]
     Indication: DERMATITIS
     Dosage: EMOLIENT .05%
     Route: 061
  3. CIMZIA [Suspect]
     Indication: CROHN'S DISEASE
     Dates: start: 20100907
  4. HYDROCORTISONE ACETATE [Concomitant]
     Indication: CROHN'S DISEASE
     Dosage: UNKNOWN DOSE
     Dates: start: 20090825
  5. CIPROFLOXACIN HCL [Concomitant]
     Dosage: UNKNOWN DOSE
     Dates: start: 20110120, end: 20110224
  6. MULTI-VITAMINS [Concomitant]
     Indication: CROHN'S DISEASE
     Dosage: DAILY DOSE: 1 TABLET
     Route: 048
  7. CALCIUM [Concomitant]
     Indication: CROHN'S DISEASE
     Route: 048
  8. FLUOXETINE HCL [Concomitant]
  9. PREDNISONE [Concomitant]
     Indication: CROHN'S DISEASE
     Route: 048
     Dates: start: 20080915, end: 20081125
  10. CRANBERRY [Concomitant]
     Route: 048
  11. TRIAMCINOLONE ACETONIDE [Concomitant]
     Indication: DERMATITIS
     Dosage: DOSE: .01%
     Route: 061
  12. CIPROFLOXACIN HCL [Concomitant]
     Dosage: UNKNOWN DOSE
     Dates: start: 20090811, end: 20100301
  13. CIPROFLOXACIN HCL [Concomitant]
     Dosage: UNKNOWN DOSE
     Dates: start: 20110301
  14. SENNA DOCUSATE [Concomitant]
     Dosage: 8.6-50 MG PER TABLET
     Route: 048
  15. LACTOBACILLUS ACIDOPHILUS [Concomitant]
     Indication: CROHN'S DISEASE
     Route: 048
  16. ACETAMINOPHEN [Concomitant]
     Indication: CROHN'S DISEASE
  17. EVENING PRIMROSE OIL [Concomitant]
     Indication: CROHN'S DISEASE
  18. CIPROFLOXACIN HCL [Concomitant]
     Indication: CROHN'S DISEASE
     Dosage: UNKNOWN DOSE
     Dates: start: 20080909, end: 20081201
  19. PREDNISONE [Concomitant]
     Route: 048
     Dates: start: 20101028, end: 20110224
  20. PREDNISONE [Concomitant]
     Route: 042
     Dates: start: 20110228
  21. DICYCLOMINE [Concomitant]
     Route: 048
  22. HYDROCORTISONE ACETATE [Concomitant]
     Dosage: UNKNOWN DOSE
     Dates: start: 20110224, end: 20110228
  23. FISH OIL-DHA-EPA [Concomitant]
     Indication: CROHN'S DISEASE
     Dosage: DAILY DOSE:1 CAP
     Route: 048
  24. CIPROFLOXACIN HCL [Concomitant]
     Dosage: UNKNOWN DOSE
     Dates: start: 20100318, end: 20100512
  25. KETOCONAZOLE [Concomitant]
     Dosage: DOSE: 2%
     Route: 061
  26. ALOE VERA [Concomitant]
     Dosage: DAILY DOSE:25 MG
     Route: 048
  27. ASCORBIC ACID [Concomitant]
     Indication: CROHN'S DISEASE
     Dosage: DAILY DOSE :500 MG
     Route: 048
  28. VITAMIN D [Concomitant]
     Dosage: DOSE:1000 UNITS
     Route: 048

REACTIONS (2)
  - PERIRECTAL ABSCESS [None]
  - ILEOSTOMY [None]
